FAERS Safety Report 8982096 (Version 1)
Quarter: 2012Q4

REPORT INFORMATION
  Report Type: 
  Country: US (occurrence: US)
  Receive Date: 20121212
  Receipt Date: 20121212
  Transmission Date: 20130627
  Serious: Yes (Death, Other)
  Sender: FDA-Public Use
  Company Number: US-ASTELLAS-1120430

PATIENT
  Age: 56 Year
  Sex: Male

DRUGS (1)
  1. TARCEVA [Suspect]
     Indication: PANCREATIC CARCINOMA

REACTIONS (6)
  - Renal failure acute [Fatal]
  - Pancreatic carcinoma [Fatal]
  - Faeces discoloured [Unknown]
  - Pyrexia [Unknown]
  - Metabolic acidosis [Unknown]
  - Pancytopenia [Unknown]
